FAERS Safety Report 15484710 (Version 1)
Quarter: 2018Q4

REPORT INFORMATION
  Report Type: Spontaneous
  Country: GB (occurrence: GB)
  Receive Date: 20181010
  Receipt Date: 20181010
  Transmission Date: 20190205
  Serious: Yes (Hospitalization, Other)
  Sender: FDA-Public Use
  Company Number: GB-PFIZER INC-2018403417

PATIENT
  Age: 21 Year
  Sex: Male

DRUGS (6)
  1. GENTAMICIN SULFATE. [Suspect]
     Active Substance: GENTAMICIN SULFATE
     Dosage: 120 MG, DAILY (INJECTION AT 10 A.M)
  2. ISONIAZID. [Suspect]
     Active Substance: ISONIAZID
     Indication: PULMONARY TUBERCULOSIS
     Dosage: 400 MG, DAILY
     Dates: start: 196704, end: 196810
  3. ETHAMBUTOL [Suspect]
     Active Substance: ETHAMBUTOL HYDROCHLORIDE
     Indication: PULMONARY TUBERCULOSIS
     Dosage: 1000 MG, DAILY
     Dates: start: 196704, end: 196810
  4. GENTAMICIN SULFATE. [Suspect]
     Active Substance: GENTAMICIN SULFATE
     Dosage: 120 MG, DAILY (INJECTION AT 2 P.M)
     Dates: end: 196810
  5. GENTAMICIN SULFATE. [Suspect]
     Active Substance: GENTAMICIN SULFATE
     Indication: PULMONARY TUBERCULOSIS
     Dosage: 120 MG, DAILY (AFTER 6 DAYS THERAPY, STOPPED FOR 2 DAYS)
     Dates: start: 196704
  6. DOXYCYCLINE MONOHYDRATE [Suspect]
     Active Substance: DOXYCYCLINE
     Indication: PULMONARY TUBERCULOSIS
     Dosage: 400 MG, DAILY
     Dates: start: 196704, end: 196810

REACTIONS (1)
  - Hyperaldosteronism [Recovered/Resolved]
